FAERS Safety Report 19381539 (Version 1)
Quarter: 2021Q2

REPORT INFORMATION
  Report Type: Spontaneous
  Country: US (occurrence: US)
  Receive Date: 20210606
  Receipt Date: 20210606
  Transmission Date: 20210717
  Serious: Yes (Hospitalization)
  Sender: FDA-Public Use
  Company Number: None

PATIENT
  Age: 74 Year
  Sex: Female
  Weight: 83.91 kg

DRUGS (1)
  1. VASCEPA [Suspect]
     Active Substance: ICOSAPENT ETHYL
     Route: 048
     Dates: start: 20200720

REACTIONS (4)
  - Dyspnoea [None]
  - Cerebrovascular accident [None]
  - Ventricular extrasystoles [None]
  - Palpitations [None]

NARRATIVE: CASE EVENT DATE: 20210427
